FAERS Safety Report 24685586 (Version 1)
Quarter: 2024Q4

REPORT INFORMATION
  Report Type: Spontaneous
  Country: US (occurrence: None)
  Receive Date: 20241127
  Receipt Date: 20241127
  Transmission Date: 20250115
  Serious: Yes (Life-Threatening, Hospitalization)
  Sender: Public
  Company Number: None

PATIENT
  Age: 47 Year
  Sex: Female
  Weight: 91.8 kg

DRUGS (1)
  1. SULFAMETHOXAZOLE [Suspect]
     Active Substance: SULFAMETHOXAZOLE
     Indication: Urinary tract infection
     Dosage: 160800 MG BID ?
     Dates: start: 20241111, end: 20241115

REACTIONS (10)
  - Jaundice [None]
  - Abdominal pain [None]
  - Fatigue [None]
  - Chromaturia [None]
  - Blood alkaline phosphatase increased [None]
  - Alanine aminotransferase increased [None]
  - Blood bilirubin increased [None]
  - Blood bilirubin increased [None]
  - Lipase increased [None]
  - International normalised ratio abnormal [None]

NARRATIVE: CASE EVENT DATE: 20241127
